FAERS Safety Report 9644837 (Version 1)
Quarter: 2013Q4

REPORT INFORMATION
  Report Type: Spontaneous
  Country: US (occurrence: US)
  Receive Date: 20131025
  Receipt Date: 20131025
  Transmission Date: 20140711
  Serious: No
  Sender: FDA-Public Use
  Company Number: US-PFIZER INC-2013302234

PATIENT
  Sex: Male

DRUGS (1)
  1. ZOLOFT [Suspect]
     Dosage: UNK

REACTIONS (6)
  - Decreased interest [Unknown]
  - Asthenia [Unknown]
  - Apathy [Unknown]
  - Feeling guilty [Unknown]
  - Fatigue [Unknown]
  - Feelings of worthlessness [Unknown]
